FAERS Safety Report 16372203 (Version 1)
Quarter: 2019Q2

REPORT INFORMATION
  Report Type: Report from Study
  Country: AU (occurrence: AU)
  Receive Date: 20190530
  Receipt Date: 20190530
  Transmission Date: 20190711
  Serious: Yes (Hospitalization)
  Sender: FDA-Public Use
  Company Number: AU-PFIZER INC-2019226214

PATIENT
  Age: 70 Year
  Sex: Male
  Weight: 81 kg

DRUGS (5)
  1. MINIPRESS [Suspect]
     Active Substance: PRAZOSIN HYDROCHLORIDE
  2. PREDNISOLONE. [Concomitant]
     Active Substance: PREDNISOLONE
     Dosage: UNK
     Dates: start: 20181027
  3. CARTIA [ACETYLSALICYLIC ACID] [Concomitant]
     Dosage: UNK
     Dates: start: 20180828
  4. INCB039110 [Suspect]
     Active Substance: ITACITINIB
     Indication: MYELOFIBROSIS
     Dosage: 200 MG, BID
     Route: 048
     Dates: start: 20130220, end: 20190122
  5. DUODART [Concomitant]
     Active Substance: DUTASTERIDE\TAMSULOSIN
     Dosage: UNK
     Dates: start: 20180828

REACTIONS (1)
  - Fall [Recovered/Resolved]

NARRATIVE: CASE EVENT DATE: 20190122
